FAERS Safety Report 5448556-4 (Version None)
Quarter: 2007Q3

REPORT INFORMATION
  Report Type: 
  Country: None (occurrence: None)
  Receive Date: 20070911
  Receipt Date: 20070903
  Transmission Date: 20080115
  Serious: Yes (Life-Threatening, Hospitalization)
  Sender: FDA-Public Use
  Company Number: FR-AVENTIS-200712815FR

PATIENT
  Age: 40 Year
  Sex: Male

DRUGS (14)
  1. RIFADIN [Suspect]
     Indication: TUBERCULOSIS
     Route: 048
     Dates: start: 20070601, end: 20070612
  2. RIFADIN [Suspect]
     Route: 042
     Dates: start: 20070613, end: 20070615
  3. RIMIFON [Suspect]
     Indication: TUBERCULOSIS
     Route: 048
     Dates: start: 20070601, end: 20070614
  4. PIRILENE [Concomitant]
     Indication: TUBERCULOSIS
     Route: 048
     Dates: start: 20070601, end: 20070625
  5. ZIDOVUDINE [Concomitant]
     Indication: NON-HODGKIN'S LYMPHOMA
     Dates: start: 19940511
  6. ZIDOVUDINE [Concomitant]
  7. ROFERON-A [Concomitant]
     Indication: NON-HODGKIN'S LYMPHOMA
     Route: 042
     Dates: start: 19940511
  8. ROFERON-A [Concomitant]
     Route: 042
  9. ETHAMBUTOL HYDROCHLORIDE [Concomitant]
     Indication: TUBERCULOSIS
     Dates: start: 20070601
  10. ACETAMINOPHEN [Concomitant]
     Indication: DRUG USE FOR UNKNOWN INDICATION
     Dates: start: 20070601
  11. CLAMOXYL                           /00249602/ [Concomitant]
     Dates: start: 20070411
  12. CLAMOXYL                           /00249602/ [Concomitant]
     Dates: start: 20070411
  13. TAVANIC [Concomitant]
     Dates: start: 20070411
  14. TAVANIC [Concomitant]
     Dates: start: 20070411

REACTIONS (13)
  - ANAEMIA [None]
  - BLOOD GLUCOSE DECREASED [None]
  - CHORIOMENINGITIS LYMPHOCYTIC [None]
  - COUGH [None]
  - DYSAESTHESIA [None]
  - DYSPHAGIA [None]
  - HYPERTHERMIA [None]
  - LYMPHOPENIA [None]
  - PHOTOPHOBIA [None]
  - RENAL FAILURE [None]
  - RHABDOMYOLYSIS [None]
  - SEPSIS [None]
  - VOMITING [None]
